FAERS Safety Report 18556966 (Version 1)
Quarter: 2020Q4

REPORT INFORMATION
  Report Type: Spontaneous
  Country: FR (occurrence: FR)
  Receive Date: 20201129
  Receipt Date: 20201129
  Transmission Date: 20210114
  Serious: No
  Sender: FDA-Public Use
  Company Number: FR-TOLMAR, INC.-20FR023032

PATIENT
  Sex: Male

DRUGS (9)
  1. CORTANCYL [Suspect]
     Active Substance: PREDNISONE
     Indication: PROSTATE CANCER
     Dosage: 5 MG
     Route: 065
     Dates: start: 2020, end: 20200703
  2. ELIGARD [Suspect]
     Active Substance: LEUPROLIDE ACETATE
     Indication: PROSTATE CANCER
     Dosage: 45 MG, Q 6 MONTH
     Route: 065
     Dates: start: 2010
  3. LERCAN [Concomitant]
     Active Substance: LERCANIDIPINE
     Indication: PRODUCT USED FOR UNKNOWN INDICATION
     Dosage: UNK
     Route: 065
  4. INEXIUM [ESOMEPRAZOLE MAGNESIUM] [Concomitant]
     Active Substance: ESOMEPRAZOLE MAGNESIUM
     Indication: GASTROOESOPHAGEAL REFLUX DISEASE
     Dosage: 40 MG, QD (MORNING AND EVENING)
     Route: 065
  5. ZYTIGA [Suspect]
     Active Substance: ABIRATERONE ACETATE
     Indication: PROSTATE CANCER
     Route: 065
  6. XTANDI [Suspect]
     Active Substance: ENZALUTAMIDE
     Indication: PROSTATE CANCER
     Dosage: 4DF, (IN ONE SINGLE INTAKE) QD
     Route: 048
     Dates: start: 20200703
  7. CORTANCYL [Suspect]
     Active Substance: PREDNISONE
     Dosage: 10 MG
     Route: 065
  8. INEXIUM [ESOMEPRAZOLE MAGNESIUM] [Concomitant]
     Active Substance: ESOMEPRAZOLE MAGNESIUM
     Dosage: 20 MG EVERY MORNING
     Route: 065
     Dates: start: 20200827
  9. DEROXAT [Concomitant]
     Active Substance: PAROXETINE HYDROCHLORIDE
     Indication: PRODUCT USED FOR UNKNOWN INDICATION
     Dosage: UNK
     Route: 065

REACTIONS (14)
  - Decreased appetite [Recovering/Resolving]
  - Condition aggravated [Unknown]
  - Rapid eye movement sleep behaviour disorder [Unknown]
  - Nausea [Not Recovered/Not Resolved]
  - Fall [Unknown]
  - Exercise lack of [Unknown]
  - Apathy [Unknown]
  - Muscle atrophy [Unknown]
  - Asthenia [Unknown]
  - Petechiae [Not Recovered/Not Resolved]
  - Gastrooesophageal reflux disease [Not Recovered/Not Resolved]
  - Sleep disorder [Unknown]
  - Taste disorder [Not Recovered/Not Resolved]
  - Cognitive disorder [Unknown]

NARRATIVE: CASE EVENT DATE: 20200703
